FAERS Safety Report 6117317-5 (Version None)
Quarter: 2009Q1

REPORT INFORMATION
  Report Type: 
  Country: None (occurrence: None)
  Receive Date: 20090314
  Receipt Date: 20090112
  Transmission Date: 20090719
  Serious: No
  Sender: FDA-Public Use
  Company Number: US-ABBOTT-09P-163-0497413-00

PATIENT
  Sex: Female
  Weight: 108.96 kg

DRUGS (7)
  1. HUMIRA [Suspect]
     Indication: PSORIASIS
     Dates: start: 20080619, end: 20080807
  2. LISINOPRIL [Concomitant]
     Indication: BLOOD PRESSURE
     Dates: start: 19980101
  3. LISINOPRIL [Concomitant]
  4. METFORMIN HCL [Concomitant]
     Indication: METABOLIC DISORDER
  5. NIASPAN [Concomitant]
     Indication: BLOOD CHOLESTEROL
     Dates: start: 20081007
  6. NIASPAN [Concomitant]
     Indication: BLOOD TRIGLYCERIDES
  7. ASPIRIN [Concomitant]
     Indication: PROPHYLAXIS

REACTIONS (4)
  - PHARYNGITIS STREPTOCOCCAL [None]
  - RASH PUSTULAR [None]
  - RASH VESICULAR [None]
  - WHITE BLOOD CELL COUNT INCREASED [None]
